FAERS Safety Report 9014256 (Version 1)
Quarter: 2013Q1

REPORT INFORMATION
  Report Type: Report from Study
  Country: CA (occurrence: CA)
  Receive Date: 20130115
  Receipt Date: 20130115
  Transmission Date: 20140127
  Serious: Yes (Other)
  Sender: FDA-Public Use
  Company Number: CA-JNJFOC-20120815132

PATIENT
  Age: 69 Year
  Sex: Male
  Weight: 90.9 kg

DRUGS (8)
  1. REMICADE [Suspect]
     Indication: RHEUMATOID ARTHRITIS
     Dosage: REPORTED AS 3 LOADING DOSES
     Route: 042
     Dates: start: 20120719
  2. REMICADE [Suspect]
     Indication: RHEUMATOID ARTHRITIS
     Dosage: REPORTED AS 3 LOADING DOSES
     Route: 042
     Dates: start: 20120703
  3. METHOTREXATE [Concomitant]
     Route: 065
  4. PLAQUENIL [Concomitant]
     Route: 065
  5. PANTOLOC [Concomitant]
     Route: 065
  6. CELEBREX [Concomitant]
     Route: 065
  7. TYLENOL [Concomitant]
     Indication: ARTHRITIS
     Route: 065
  8. FOLIC ACID [Concomitant]
     Route: 065

REACTIONS (1)
  - Knee operation [Recovering/Resolving]
